FAERS Safety Report 6237939-0 (Version None)
Quarter: 2009Q2

REPORT INFORMATION
  Report Type: 
  Country: None (occurrence: None)
  Receive Date: 20090622
  Receipt Date: 20090612
  Transmission Date: 20091009
  Serious: Yes (Hospitalization, Other)
  Sender: FDA-Public Use
  Company Number: FR-JNJFOC-20090202106

PATIENT
  Age: 40 Year
  Sex: Male
  Weight: 62 kg

DRUGS (6)
  1. REMICADE [Suspect]
     Route: 042
  2. REMICADE [Suspect]
     Dosage: TOTAL OF 4 INFUSIONS
     Route: 042
  3. REMICADE [Suspect]
     Route: 042
  4. REMICADE [Suspect]
     Route: 042
  5. REMICADE [Suspect]
     Indication: ANKYLOSING SPONDYLITIS
     Route: 042
  6. PIROXICAM [Concomitant]

REACTIONS (2)
  - COAGULOPATHY [None]
  - DISSEMINATED TUBERCULOSIS [None]
